FAERS Safety Report 24994842 (Version 1)
Quarter: 2025Q1

REPORT INFORMATION
  Report Type: Spontaneous
  Country: US (occurrence: None)
  Receive Date: 20250220
  Receipt Date: 20250220
  Transmission Date: 20250409
  Serious: Yes (Hospitalization)
  Sender: FDA-CTU
  Company Number: None

PATIENT
  Sex: Female

DRUGS (8)
  1. REPATHA [Suspect]
     Active Substance: EVOLOCUMAB
     Indication: Hyperlipidaemia
     Dosage: FREQUENCY : EVERY OTHER WEEK;?
     Route: 058
     Dates: start: 20210722
  2. HYPERLIPIDEMIA, UNSPECIFIED [Concomitant]
  3. ELIQUIS [Concomitant]
     Active Substance: APIXABAN
  4. FISH OIL CON CAP 300MG [Concomitant]
  5. LISINOP/HCTZ TAB 20-12.5 [Concomitant]
  6. METFORMIN TAB 500MG ER [Concomitant]
  7. OZEMPIC [Concomitant]
     Active Substance: SEMAGLUTIDE
  8. VYTORIN TAB 10-40MG [Concomitant]

REACTIONS (1)
  - Cerebrovascular accident [None]
